FAERS Safety Report 18041220 (Version 1)
Quarter: 2020Q3

REPORT INFORMATION
  Report Type: Spontaneous
  Country: US (occurrence: US)
  Receive Date: 20200719
  Receipt Date: 20200719
  Transmission Date: 20201103
  Serious: No
  Sender: FDA-Public Use
  Company Number: US-BIOGEN-2020BI00898995

PATIENT
  Sex: Female

DRUGS (1)
  1. TECFIDERA [Suspect]
     Active Substance: DIMETHYL FUMARATE
     Indication: MULTIPLE SCLEROSIS
     Route: 048

REACTIONS (9)
  - Musculoskeletal stiffness [Unknown]
  - Osteoporosis [Unknown]
  - Pain [Unknown]
  - Fatigue [Unknown]
  - Hypersomnia [Unknown]
  - Muscle spasms [Unknown]
  - Neck pain [Unknown]
  - Vitamin D decreased [Unknown]
  - Arthralgia [Unknown]
